FAERS Safety Report 14914445 (Version 8)
Quarter: 2021Q4

REPORT INFORMATION
  Report Type: Report from Study
  Country: US (occurrence: US)
  Receive Date: 20180518
  Receipt Date: 20211116
  Transmission Date: 20220303
  Serious: Yes (Other)
  Sender: FDA-Public Use
  Company Number: US-JAZZ-2013-US-001238

PATIENT
  Sex: Female
  Weight: 50.794 kg

DRUGS (3)
  1. XYREM [Suspect]
     Active Substance: SODIUM OXYBATE
     Indication: Narcolepsy
     Dosage: 4.5 GRAM, BID
     Route: 048
     Dates: start: 20050425, end: 2005
  2. XYREM [Suspect]
     Active Substance: SODIUM OXYBATE
     Indication: Cataplexy
     Dosage: 4.5 GRAM, QD
     Route: 048
     Dates: start: 2005
  3. MODAFINIL [Concomitant]
     Active Substance: MODAFINIL
     Indication: Narcolepsy

REACTIONS (6)
  - Chronic kidney disease [Not Recovered/Not Resolved]
  - Plasma cell myeloma [Unknown]
  - Bladder discomfort [Not Recovered/Not Resolved]
  - Heart rate irregular [Not Recovered/Not Resolved]
  - Muscular weakness [Recovered/Resolved]
  - Hypertension [Not Recovered/Not Resolved]

NARRATIVE: CASE EVENT DATE: 20050101
